FAERS Safety Report 12819106 (Version 1)
Quarter: 2016Q4

REPORT INFORMATION
  Report Type: Spontaneous
  Country: JP (occurrence: JP)
  Receive Date: 20161006
  Receipt Date: 20161006
  Transmission Date: 20170207
  Serious: Yes (Hospitalization)
  Sender: FDA-Public Use
  Company Number: JP-SA-2016SA181026

PATIENT
  Age: 78 Year
  Sex: Male
  Weight: 70.3 kg

DRUGS (1)
  1. CLOPIDOGREL BISULFATE. [Suspect]
     Active Substance: CLOPIDOGREL BISULFATE
     Indication: ANGINA PECTORIS
     Route: 065

REACTIONS (7)
  - Glomerulonephritis membranous [Recovered/Resolved]
  - Oedema peripheral [Recovered/Resolved]
  - Protein urine present [Recovered/Resolved]
  - Urine protein/creatinine ratio abnormal [Recovered/Resolved]
  - Blood creatinine increased [Recovered/Resolved]
  - Albumin urine present [Recovered/Resolved]
  - Blood urine present [Recovered/Resolved]
